FAERS Safety Report 10618973 (Version 1)
Quarter: 2014Q4

REPORT INFORMATION
  Report Type: Spontaneous
  Country: DE (occurrence: None)
  Receive Date: 20141126
  Receipt Date: 20141126
  Transmission Date: 20150529
  Serious: Yes (Hospitalization, Other)
  Sender: FDA-Public Use
  Company Number: B1021638A

PATIENT
  Age: 74 Year
  Sex: Male
  Weight: 73 kg

DRUGS (6)
  1. TRUVADA (EMTRICITABINE + TENOFOVIR DISOPROXIL FUMARATE) [Concomitant]
  2. RALTEGRAVIR [Concomitant]
     Active Substance: RALTEGRAVIR
  3. METOCLOPRAMID (METOCLOPRAMIDE) [Concomitant]
  4. VALSARTAN. [Concomitant]
     Active Substance: VALSARTAN
  5. MARAVIROC (MARAVIROC) UNKNOWN [Suspect]
     Active Substance: MARAVIROC
     Indication: HIV INFECTION
     Route: 048
     Dates: start: 20140401
  6. AMLODIPIN [Concomitant]
     Active Substance: AMLODIPINE BESYLATE

REACTIONS (3)
  - Ileus [None]
  - Parathyroid tumour benign [None]
  - Adenocarcinoma of colon [None]
